FAERS Safety Report 17295367 (Version 2)
Quarter: 2020Q1

REPORT INFORMATION
  Report Type: Report from Study
  Country: None (occurrence: US)
  Receive Date: 20200121
  Receipt Date: 20200323
  Transmission Date: 20200409
  Serious: Yes (Other)
  Sender: FDA-Public Use
  Company Number: US-ABBVIE-19K-163-2752549-00

PATIENT
  Age: 55 Year
  Sex: Female

DRUGS (2)
  1. HUMIRA [Suspect]
     Active Substance: ADALIMUMAB
     Indication: CROHN^S DISEASE
     Route: 058
  2. HUMIRA [Suspect]
     Active Substance: ADALIMUMAB
     Indication: PSORIATIC ARTHROPATHY
     Route: 058

REACTIONS (9)
  - Hepatic steatosis [Not Recovered/Not Resolved]
  - Sluggishness [Unknown]
  - Pain [Recovering/Resolving]
  - Feeling abnormal [Unknown]
  - Abdominal distension [Recovering/Resolving]
  - Rotator cuff syndrome [Recovering/Resolving]
  - Hernia [Recovering/Resolving]
  - Condition aggravated [Recovered/Resolved]
  - Diarrhoea [Recovering/Resolving]

NARRATIVE: CASE EVENT DATE: 201904
